FAERS Safety Report 4458267-X (Version None)
Quarter: 2004Q3

REPORT INFORMATION
  Report Type: 
  Country: None (occurrence: None)
  Receive Date: 20040917
  Receipt Date: 20040310
  Transmission Date: 20050211
  Serious: Yes (Hospitalization)
  Sender: FDA-Public Use
  Company Number: US-JNJFOC-20040205146

PATIENT
  Age: 43 Year
  Sex: Female
  Weight: 91.6266 kg

DRUGS (2)
  1. TOPMAX (TOPIRAMATE) UNSPECIFIED [Suspect]
     Indication: BACK PAIN
     Dosage: 100 MG, IN 1 DAY, ORAL
     Route: 048
     Dates: start: 20031101
  2. AVENZA (ALL OTHER THERAPEUTIC PRODUCTS) [Concomitant]

REACTIONS (2)
  - BACK PAIN [None]
  - UNEXPECTED THERAPEUTIC DRUG EFFECT [None]
